FAERS Safety Report 9500126 (Version 1)
Quarter: 2013Q3

REPORT INFORMATION
  Report Type: Report from Study
  Country: NL (occurrence: NL)
  Receive Date: 20130905
  Receipt Date: 20130905
  Transmission Date: 20140515
  Serious: Yes (Hospitalization)
  Sender: FDA-Public Use
  Company Number: PHHY2013NL096850

PATIENT
  Sex: Male

DRUGS (5)
  1. ZOMETA [Suspect]
     Indication: PROSTATE CANCER METASTATIC
     Dosage: 4 MG/100 ML, ONCE PER 4 WEEKS
     Route: 042
  2. ZOMETA [Suspect]
     Dosage: 4 MG/100 ML, ONCE PER 4 WEEKS
     Route: 042
     Dates: start: 20130805
  3. ZOMETA [Suspect]
     Dosage: 4 MG/100 ML, ONCE PER 4 WEEKS
     Route: 042
     Dates: start: 20130903
  4. CIPROFLOXACIN [Concomitant]
     Dosage: UNK UKN, BID
  5. OXYNORM [Concomitant]
     Dosage: 5 MG, AS NECESSARY

REACTIONS (2)
  - Pneumonia [Unknown]
  - Myalgia [Recovered/Resolved]
